FAERS Safety Report 9154321 (Version 1)
Quarter: 2013Q1

REPORT INFORMATION
  Report Type: Spontaneous
  Country: CA (occurrence: CA)
  Receive Date: 20130311
  Receipt Date: 20130311
  Transmission Date: 20140127
  Serious: Yes (Life-Threatening, Hospitalization, Other)
  Sender: FDA-Public Use
  Company Number: CA-ASTRAZENECA-2013SE14991

PATIENT
  Age: 54 Year
  Sex: Female

DRUGS (13)
  1. VIMOVO [Suspect]
     Route: 048
     Dates: start: 2013
  2. ZANTAC [Concomitant]
     Dates: start: 20111025, end: 20120515
  3. LORAZEPAM [Concomitant]
     Dosage: LONG TERM
  4. ATORVASTATIN [Concomitant]
     Dosage: LONG TERM
  5. SEPTRA DS [Concomitant]
     Dosage: FOR ONE WEEK
  6. NAPROSYN [Concomitant]
  7. NAPROSYN [Concomitant]
     Dates: start: 20110908, end: 20121213
  8. QUESTRAN [Concomitant]
     Dosage: 25 MG 7 AM, 9 PM
     Route: 048
  9. PERCOCET [Concomitant]
  10. TYLENOL [Concomitant]
  11. STEROIDS [Concomitant]
     Indication: HAEMORRHOIDS
  12. ATROVENT [Concomitant]
  13. MULTIVITAMIN [Concomitant]

REACTIONS (2)
  - Pain [Unknown]
  - Gastrointestinal haemorrhage [Unknown]
